FAERS Safety Report 6886166-2 (Version None)
Quarter: 2010Q3

REPORT INFORMATION
  Report Type: 
  Country: None (occurrence: None)
  Receive Date: 20100729
  Receipt Date: 20080123
  Transmission Date: 20110219
  Serious: Yes (Death)
  Sender: FDA-Public Use
  Company Number: US-PFIZER INC-2008006748

PATIENT
  Sex: Male

DRUGS (1)
  1. CELEBREX [Suspect]
     Route: 048
     Dates: start: 20030101, end: 20050923

REACTIONS (1)
  - MYOCARDIAL INFARCTION [None]
